FAERS Safety Report 12909505 (Version 3)
Quarter: 2017Q2

REPORT INFORMATION
  Report Type: Report from Study
  Country: US (occurrence: US)
  Receive Date: 20161104
  Receipt Date: 20170512
  Transmission Date: 20170830
  Serious: No
  Sender: FDA-Public Use
  Company Number: US-ALEXION PHARMACEUTICALS INC.-A201608331

PATIENT
  Sex: Female

DRUGS (1)
  1. STRENSIQ [Suspect]
     Active Substance: ASFOTASE ALFA
     Indication: HYPOPHOSPHATASIA
     Dosage: 80 MG, SIX TIMES/WEEK
     Route: 058
     Dates: start: 201603

REACTIONS (3)
  - Peripheral swelling [Recovered/Resolved]
  - Cardiac murmur [Recovered/Resolved]
  - Dyspnoea [Unknown]
